FAERS Safety Report 8986654 (Version 2)
Quarter: 2013Q1

REPORT INFORMATION
  Report Type: Spontaneous
  Country: US (occurrence: None)
  Receive Date: 20121217
  Receipt Date: 20130122
  Transmission Date: 20140127
  Serious: Yes (Death, Other)
  Sender: FDA-Public Use
  Company Number: TPA2012A09714

PATIENT
  Age: 68 Year
  Sex: Male
  Weight: 90.27 kg

DRUGS (5)
  1. ACTOS (PIOGLITAZONE HYDROCHLORIDE) [Suspect]
     Indication: TYPE 2 DIABETES MELLITUS
     Dates: start: 20060905, end: 20120408
  2. METFORMIN (METFORMIN) [Concomitant]
  3. GLUCOPHAGE (METFORMIN HYDROCHLORIDE) [Concomitant]
  4. GLARGINE/LANTUS (INSULIN GLARGINE) [Concomitant]
  5. NOVOLOG (INSULIN ASPART) [Concomitant]

REACTIONS (1)
  - Metastatic carcinoma of the bladder [None]
